FAERS Safety Report 20045201 (Version 1)
Quarter: 2021Q4

REPORT INFORMATION
  Report Type: Spontaneous
  Country: FR (occurrence: FR)
  Receive Date: 20211108
  Receipt Date: 20211108
  Transmission Date: 20220303
  Serious: Yes (Life-Threatening, Hospitalization)
  Sender: FDA-Public Use
  Company Number: None

PATIENT
  Age: 12 Year
  Sex: Female
  Weight: 35 kg

DRUGS (12)
  1. ETOPOSIDE [Suspect]
     Active Substance: ETOPOSIDE
     Indication: Ewing^s sarcoma
     Dosage: 110 MILLIGRAM, CYCLE
     Route: 042
     Dates: start: 20210211, end: 20210706
  2. PRIMPERAN [Suspect]
     Active Substance: METOCLOPRAMIDE HYDROCHLORIDE
     Indication: Nausea
     Dosage: 15 MILLIGRAM, TOTAL
     Route: 048
     Dates: start: 20210726, end: 20210726
  3. VINCRISTINE [Suspect]
     Active Substance: VINCRISTINE
     Indication: Ewing^s sarcoma
     Dosage: 6 MILLIGRAM, CYCLE
     Route: 042
     Dates: start: 20210127, end: 20210726
  4. DOXORUBICIN [Suspect]
     Active Substance: DOXORUBICIN
     Indication: Ewing^s sarcoma
     Dosage: 123 MILLIGRAM, CYCLE
     Route: 042
     Dates: start: 20210127, end: 20210527
  5. EMEND [Suspect]
     Active Substance: APREPITANT
     Indication: Nausea
     Dosage: 1 DOSAGE FORM, TOTAL
     Route: 048
     Dates: start: 20210726, end: 20210726
  6. IFOSFAMIDE [Suspect]
     Active Substance: IFOSFAMIDE
     Indication: Ewing^s sarcoma
     Dosage: 1960 MILLIGRAM, CYCLE
     Route: 042
     Dates: start: 20210211, end: 20210706
  7. CYCLOPHOSPHAMIDE [Suspect]
     Active Substance: CYCLOPHOSPHAMIDE
     Indication: Ewing^s sarcoma
     Dosage: 1310 MILLIGRAM, CYCLE
     Route: 042
     Dates: start: 20210127, end: 20210726
  8. BACTRIM [Concomitant]
     Active Substance: SULFAMETHOXAZOLE\TRIMETHOPRIM
     Dosage: INCONNUE
     Route: 048
  9. ZOPHREN                            /00955301/ [Concomitant]
     Dosage: INCONNUE
     Route: 048
  10. POTASSIUM GLUCONATE [Concomitant]
     Active Substance: POTASSIUM GLUCONATE
     Dosage: INCONNUE
     Route: 048
  11. POLYETHYLENE GLYCOL 4000 [Concomitant]
     Active Substance: POLYETHYLENE GLYCOL 4000
     Dosage: INCONNUE
     Route: 048
  12. INEXIUM                            /01479303/ [Concomitant]
     Dosage: INCONNUE
     Route: 048

REACTIONS (2)
  - Cardiac failure acute [Recovering/Resolving]
  - Congestive cardiomyopathy [Not Recovered/Not Resolved]

NARRATIVE: CASE EVENT DATE: 20210726
